FAERS Safety Report 11377603 (Version 1)
Quarter: 2015Q3

REPORT INFORMATION
  Report Type: Spontaneous
  Country: US (occurrence: US)
  Receive Date: 20150811
  Receipt Date: 20150811
  Transmission Date: 20151125
  Serious: No
  Sender: FDA-Public Use
  Company Number: US-ELI_LILLY_AND_COMPANY-US200904002268

PATIENT
  Sex: Female

DRUGS (2)
  1. HUMULIN 70/30 [Suspect]
     Active Substance: INSULIN HUMAN
  2. GLEEVEC [Concomitant]
     Active Substance: IMATINIB MESYLATE

REACTIONS (2)
  - Fear of weight gain [Unknown]
  - Blood glucose decreased [Unknown]
